FAERS Safety Report 21950845 (Version 7)
Quarter: 2023Q2

REPORT INFORMATION
  Report Type: Spontaneous
  Country: GB (occurrence: None)
  Receive Date: 20230203
  Receipt Date: 20230512
  Transmission Date: 20230721
  Serious: Yes (Death, Hospitalization)
  Sender: FDA-Public Use
  Company Number: GB-ROCHE-3277888

PATIENT
  Age: 47 Year
  Sex: Female

DRUGS (6)
  1. GAVRETO [Suspect]
     Active Substance: PRALSETINIB
     Indication: Breast cancer metastatic
     Route: 048
     Dates: start: 202005, end: 20230113
  2. GAVRETO [Suspect]
     Active Substance: PRALSETINIB
     Indication: RET gene mutation
  3. DENOSUMAB [Concomitant]
     Active Substance: DENOSUMAB
     Route: 058
     Dates: start: 201911, end: 202301
  4. LANSOPRAZOLE [Concomitant]
     Active Substance: LANSOPRAZOLE
     Route: 048
     Dates: end: 202301
  5. METHYLPREDNISOLONE [Concomitant]
     Active Substance: METHYLPREDNISOLONE
  6. DEXAMETHASONE [Concomitant]
     Active Substance: DEXAMETHASONE
     Route: 042

REACTIONS (12)
  - Fatigue [Unknown]
  - Decreased appetite [Unknown]
  - Blister [Unknown]
  - Haemoglobin decreased [Unknown]
  - Portal hypertension [Unknown]
  - Fall [Unknown]
  - Ascites [Unknown]
  - Granulocyte-colony stimulating factor level decreased [Unknown]
  - Brain oedema [Unknown]
  - Intracranial mass [Unknown]
  - Hydrocephalus [Unknown]
  - Death [Fatal]

NARRATIVE: CASE EVENT DATE: 20230113
